FAERS Safety Report 7725945-6 (Version None)
Quarter: 2011Q3

REPORT INFORMATION
  Report Type: 
  Country: None (occurrence: None)
  Receive Date: 20110902
  Receipt Date: 20110826
  Transmission Date: 20111222
  Serious: Yes (Hospitalization)
  Sender: FDA-Public Use
  Company Number: DE-JNJFOC-20110813499

PATIENT
  Age: 78 Year
  Sex: Male
  Weight: 70 kg

DRUGS (5)
  1. ACETYLSALICYLIC ACID SRT [Concomitant]
  2. NOVAMINSULFON [Concomitant]
  3. SIMVASTATIN [Concomitant]
  4. XARELTO [Suspect]
     Indication: THROMBOSIS PROPHYLAXIS
     Route: 048
     Dates: start: 20110217, end: 20110303
  5. IBUPROFEN [Concomitant]

REACTIONS (3)
  - DIARRHOEA [None]
  - ARTHRITIS [None]
  - C-REACTIVE PROTEIN INCREASED [None]
